FAERS Safety Report 10568911 (Version 1)
Quarter: 2014Q4

REPORT INFORMATION
  Report Type: Spontaneous
  Country: IT (occurrence: IT)
  Receive Date: 20141106
  Receipt Date: 20141106
  Transmission Date: 20150529
  Serious: Yes (Hospitalization)
  Sender: FDA-Public Use
  Company Number: IT-ASTRAZENECA-2014SE83375

PATIENT
  Age: 80 Year
  Sex: Female

DRUGS (10)
  1. FUROSEMIDE. [Concomitant]
     Active Substance: FUROSEMIDE
     Route: 048
     Dates: start: 20130703, end: 20130703
  2. DELTACORTENE [Concomitant]
     Active Substance: PREDNISONE
     Route: 048
     Dates: start: 20130703, end: 20130703
  3. SELEPARINA [Concomitant]
     Active Substance: NADROPARIN CALCIUM
     Dosage: 1 DF, UNK (STRENGTH: 5700 IU ANTIXA/0.6 ML)
     Route: 058
     Dates: start: 20130703, end: 20130703
  4. EPREX [Concomitant]
     Active Substance: ERYTHROPOIETIN
     Dosage: 1 DF, 1/WEEK (FORM: PHOSPHATE BUFFERED SYRINGES)
     Dates: start: 20130703, end: 20130703
  5. BLOPRESID [Suspect]
     Active Substance: CANDESARTAN CILEXETIL\HYDROCHLOROTHIAZIDE
     Indication: HYPERTENSION
     Route: 048
     Dates: start: 20130703, end: 20130703
  6. BACTRIM [Concomitant]
     Active Substance: SULFAMETHOXAZOLE\TRIMETHOPRIM
     Dosage: 2 DF, 3/WEEK (STRENGTH: 80 MG+ 400 MG)
     Route: 048
     Dates: start: 20130703, end: 20130703
  7. OMEPRAZOLE. [Concomitant]
     Active Substance: OMEPRAZOLE
     Indication: HIATUS HERNIA
     Route: 048
     Dates: start: 20130703, end: 20130703
  8. ALLOPURINOL. [Concomitant]
     Active Substance: ALLOPURINOL
     Route: 048
     Dates: start: 20130703, end: 20130703
  9. SPORANOX [Concomitant]
     Active Substance: ITRACONAZOLE\SODIUM CHLORIDE
     Route: 048
  10. MYELOSTIM [Concomitant]
     Dosage: 1 DF, 3/WEEK (FORM: LYOPHILIZED AMPOULE + PREFILLED SYRINGE)
     Dates: start: 20130703, end: 20130703

REACTIONS (1)
  - Hypotension [Recovering/Resolving]

NARRATIVE: CASE EVENT DATE: 20140703
